FAERS Safety Report 10967494 (Version 1)
Quarter: 2015Q1

REPORT INFORMATION
  Report Type: Spontaneous
  Country: US (occurrence: US)
  Receive Date: 20150330
  Receipt Date: 20150330
  Transmission Date: 20150721
  Serious: No
  Sender: FDA-Public Use
  Company Number: US-PFIZER INC-2015104857

PATIENT
  Age: 61 Year
  Weight: 70 kg

DRUGS (2)
  1. DELIXANT [Concomitant]
     Dosage: UNK
  2. SUTENT [Suspect]
     Active Substance: SUNITINIB MALATE
     Indication: RENAL CANCER
     Dosage: 50 MG, CYCLIC (2 WEEKS ON AND 1 WEEK OFF)
     Dates: start: 201412

REACTIONS (7)
  - Pain in extremity [Unknown]
  - Dysgeusia [Unknown]
  - Blood creatinine increased [Unknown]
  - Vomiting [Recovered/Resolved]
  - Eye swelling [Unknown]
  - Peripheral swelling [Unknown]
  - Swelling face [Unknown]
